FAERS Safety Report 13055644 (Version 1)
Quarter: 2016Q4

REPORT INFORMATION
  Report Type: Spontaneous
  Country: US (occurrence: US)
  Receive Date: 20161222
  Receipt Date: 20161222
  Transmission Date: 20170207
  Serious: Yes (Other)
  Sender: FDA-Public Use
  Company Number: US-RELYPSA-RLY2016003553

PATIENT
  Sex: Male

DRUGS (5)
  1. VELTASSA [Suspect]
     Active Substance: PATIROMER
     Indication: HYPERKALAEMIA
     Dosage: 8.4 G, QD
     Route: 048
     Dates: start: 201610, end: 2016
  2. CARVEDILOL. [Concomitant]
     Active Substance: CARVEDILOL
  3. BABY ASPIRIN [Concomitant]
     Active Substance: ASPIRIN
  4. FISH OIL [Concomitant]
     Active Substance: FISH OIL
  5. HYDRALAZINE [Concomitant]
     Active Substance: HYDRALAZINE HYDROCHLORIDE

REACTIONS (1)
  - Gastroenteritis salmonella [Recovering/Resolving]

NARRATIVE: CASE EVENT DATE: 2016
